FAERS Safety Report 8106857 (Version 2)
Quarter: 2015Q4

REPORT INFORMATION
  Report Type: Spontaneous
  Country: US (occurrence: US)
  Receive Date: 20110825
  Receipt Date: 20151222
  Transmission Date: 20160305
  Serious: Yes (Other)
  Sender: FDA-Public Use
  Company Number: US-BAYER-2011-074999

PATIENT
  Age: 39 Year
  Sex: Female
  Weight: 58.5 kg

DRUGS (3)
  1. YAZ [Suspect]
     Active Substance: DROSPIRENONE\ETHINYL ESTRADIOL
  2. XYZAL [Concomitant]
     Active Substance: LEVOCETIRIZINE DIHYDROCHLORIDE
  3. YASMIN [Suspect]
     Active Substance: DROSPIRENONE\ETHINYL ESTRADIOL

REACTIONS (3)
  - Cerebrovascular accident [Unknown]
  - Injury [Unknown]
  - Pain [Unknown]

NARRATIVE: CASE EVENT DATE: 20090630
